FAERS Safety Report 8879590 (Version 1)
Quarter: 2012Q4

REPORT INFORMATION
  Report Type: 
  Country: BR (occurrence: BR)
  Receive Date: 20121031
  Receipt Date: 20121031
  Transmission Date: 20130627
  Serious: Yes (Congenital Anomaly)
  Sender: FDA-Public Use
  Company Number: BR-SANOFI-AVENTIS-2012SA077285

PATIENT
  Sex: Male
  Weight: 3.05 kg

DRUGS (1)
  1. WINTOMYLON [Suspect]
     Indication: MATERNAL DRUG EXPOSURE
     Route: 064

REACTIONS (2)
  - Congenital knee deformity [Not Recovered/Not Resolved]
  - Foetal exposure during pregnancy [Unknown]
